FAERS Safety Report 9262537 (Version 1)
Quarter: 2013Q2

REPORT INFORMATION
  Report Type: Spontaneous
  Country: US (occurrence: US)
  Receive Date: 20130430
  Receipt Date: 20130430
  Transmission Date: 20140414
  Serious: Yes (Hospitalization)
  Sender: FDA-Public Use
  Company Number: US-BAYER-2013-051916

PATIENT
  Age: 28 Year
  Sex: Female
  Weight: 97.51 kg

DRUGS (4)
  1. YAZ [Suspect]
  2. YASMIN [Suspect]
  3. OCELLA [Suspect]
  4. CIPROFLOXACIN [Concomitant]
     Dosage: 500 MG, UNK

REACTIONS (1)
  - Deep vein thrombosis [None]
